FAERS Safety Report 5429726-8 (Version None)
Quarter: 2007Q3

REPORT INFORMATION
  Report Type: 
  Country: None (occurrence: None)
  Receive Date: 20070829
  Receipt Date: 20070821
  Transmission Date: 20080115
  Serious: Yes (Hospitalization)
  Sender: FDA-Public Use
  Company Number: HQWYE427721MAR06

PATIENT
  Age: 93 Year
  Sex: Female

DRUGS (5)
  1. CORDARONE [Suspect]
     Route: 048
     Dates: end: 20060204
  2. ASPIRIN [Concomitant]
     Dosage: UNKNOWN
     Route: 048
  3. PERINDOPRIL ERBUMINE [Concomitant]
     Dosage: UNKNOWN
     Route: 048
  4. TRINIPATCH [Concomitant]
     Dosage: UNKNOWN
     Route: 062
  5. ATHYMIL [Concomitant]
     Dosage: UNKNOWN
     Route: 048

REACTIONS (2)
  - INTERSTITIAL LUNG DISEASE [None]
  - PULMONARY OEDEMA [None]
